FAERS Safety Report 5059640-1 (Version None)
Quarter: 2006Q3

REPORT INFORMATION
  Report Type: 
  Country: None (occurrence: None)
  Receive Date: 20060724
  Receipt Date: 20060518
  Transmission Date: 20061208
  Serious: No
  Sender: FDA-Public Use
  Company Number: US-GLAXOSMITHKLINE-A0606345A

PATIENT
  Sex: Female

DRUGS (1)
  1. HYCAMTIN [Suspect]
     Dosage: 3.5MGM2 WEEKLY
     Route: 042
     Dates: start: 20060501

REACTIONS (1)
  - SOMATOFORM DISORDER CARDIOVASCULAR [None]
